FAERS Safety Report 7910538-8 (Version None)
Quarter: 2011Q4

REPORT INFORMATION
  Report Type: 
  Country: None (occurrence: None)
  Receive Date: 20111111
  Receipt Date: 20111029
  Transmission Date: 20120403
  Serious: Yes (Other)
  Sender: FDA-Public Use
  Company Number: PHEH2011US08497

PATIENT
  Age: 55 Year
  Sex: Female

DRUGS (5)
  1. PANTOPRAZOLE [Suspect]
  2. FOSAMAX [Suspect]
     Dosage: UNK UKN, UNK
  3. CALCITONIN SALMON [Suspect]
  4. PROMETRIUM [Suspect]
     Dosage: UNK UKN, UNK
  5. ACTONEL [Suspect]
     Dosage: 1 PER WEEK

REACTIONS (1)
  - SPINAL COMPRESSION FRACTURE [None]
